FAERS Safety Report 15181041 (Version 1)
Quarter: 2018Q3

REPORT INFORMATION
  Report Type: Spontaneous
  Country: US (occurrence: US)
  Receive Date: 20180723
  Receipt Date: 20180723
  Transmission Date: 20181010
  Serious: Yes (Other)
  Sender: FDA-Public Use
  Company Number: US-COOPERSURGICAL, INC.-US-2018CPS032494

PATIENT

DRUGS (3)
  1. ARMODAFINIL. [Concomitant]
     Active Substance: ARMODAFINIL
     Indication: NARCOLEPSY
     Dosage: UNK
     Route: 065
  2. PARAGARD T 380A [Suspect]
     Active Substance: COPPER
     Indication: CONTRACEPTION
     Dosage: UNK
     Route: 015
     Dates: start: 20180105, end: 20180607
  3. IMIPRAMINE [Concomitant]
     Active Substance: IMIPRAMINE
     Indication: NARCOLEPSY
     Dosage: UNK
     Route: 065

REACTIONS (4)
  - Unintentional medical device removal [Recovered/Resolved]
  - Cervical dysplasia [Not Recovered/Not Resolved]
  - Menorrhagia [Not Recovered/Not Resolved]
  - Device expulsion [Recovered/Resolved]

NARRATIVE: CASE EVENT DATE: 20180105
